FAERS Safety Report 19232759 (Version 3)
Quarter: 2021Q2

REPORT INFORMATION
  Report Type: Spontaneous
  Country: FR (occurrence: FR)
  Receive Date: 20210507
  Receipt Date: 20210604
  Transmission Date: 20210717
  Serious: Yes (Other)
  Sender: FDA-Public Use
  Company Number: FR-AUROBINDO-AUR-APL-2021-018420

PATIENT
  Age: 72 Year
  Sex: Male

DRUGS (2)
  1. OXALIPLATIN. [Suspect]
     Active Substance: OXALIPLATIN
     Indication: TRANSITIONAL CELL CARCINOMA
     Dosage: UNK
     Route: 065
  2. GEMCITABINE. [Concomitant]
     Active Substance: GEMCITABINE
     Indication: TRANSITIONAL CELL CARCINOMA
     Dosage: UNK
     Route: 065

REACTIONS (7)
  - Toxic optic neuropathy [Recovered/Resolved]
  - Cataract subcapsular [Recovering/Resolving]
  - Cataract cortical [Recovering/Resolving]
  - Oedema [Recovered/Resolved]
  - Cataract nuclear [Recovering/Resolving]
  - Visual field defect [Recovered/Resolved]
  - Ocular toxicity [Recovered/Resolved]
